FAERS Safety Report 4791593-3 (Version None)
Quarter: 2005Q4

REPORT INFORMATION
  Report Type: 
  Country: None (occurrence: None)
  Receive Date: 20051007
  Receipt Date: 20050506
  Transmission Date: 20060501
  Serious: Yes (Hospitalization)
  Sender: FDA-Public Use
  Company Number: US-BRISTOL-MYERS SQUIBB COMPANY-12958971

PATIENT
  Sex: Female
  Weight: 109 kg

DRUGS (1)
  1. AVAPRO [Suspect]
     Indication: HYPERTENSION
     Dosage: ONGOING 5-6 YEARS

REACTIONS (5)
  - ARTHRALGIA [None]
  - CHEST PAIN [None]
  - FLUSHING [None]
  - HOT FLUSH [None]
  - OEDEMA PERIPHERAL [None]
